FAERS Safety Report 14533106 (Version 2)
Quarter: 2018Q1

REPORT INFORMATION
  Report Type: Spontaneous
  Country: GB (occurrence: GB)
  Receive Date: 20180215
  Receipt Date: 20180221
  Transmission Date: 20180509
  Serious: Yes (Hospitalization)
  Sender: FDA-Public Use
  Company Number: GB-MYLANLABS-2018M1011430

PATIENT
  Age: 37 Year
  Sex: Female

DRUGS (2)
  1. CLOZARIL [Suspect]
     Active Substance: CLOZAPINE
     Dosage: 425 MG, UNK
     Route: 048
     Dates: start: 201802, end: 201802
  2. CLOZARIL [Suspect]
     Active Substance: CLOZAPINE
     Indication: SCHIZOPHRENIA
     Dosage: UNK
     Route: 048
     Dates: start: 19981019

REACTIONS (3)
  - Blister infected [Unknown]
  - Antipsychotic drug level increased [Unknown]
  - Muscular weakness [Unknown]

NARRATIVE: CASE EVENT DATE: 201802
